FAERS Safety Report 8190893-7 (Version None)
Quarter: 2012Q1

REPORT INFORMATION
  Report Type: 
  Country: None (occurrence: None)
  Receive Date: 20120221
  Receipt Date: 20111123
  Transmission Date: 20120608
  Serious: No
  Sender: FDA-Public Use
  Company Number: 1000025729

PATIENT
  Age: 46 Year
  Sex: Female

DRUGS (4)
  1. OYCODONE (OXYCODONE) (OXYCODONE) [Concomitant]
  2. NORCO (VICODIN) (VICODIN) [Concomitant]
  3. VIIBRYD [Suspect]
     Indication: DEPRESSION
     Dosage: 10 MG (10 MG, 1 IN 1 D), ORAL, 20 MG (20 MG, 1 IN 1 D), ORAL
     Route: 048
     Dates: start: 20111012, end: 20111018
  4. VIIBRYD [Suspect]
     Indication: DEPRESSION
     Dosage: 10 MG (10 MG, 1 IN 1 D), ORAL, 20 MG (20 MG, 1 IN 1 D), ORAL
     Route: 048
     Dates: start: 20110219, end: 20111001

REACTIONS (2)
  - PANIC ATTACK [None]
  - HALLUCINATION [None]
